FAERS Safety Report 7736114-8 (Version None)
Quarter: 2011Q3

REPORT INFORMATION
  Report Type: 
  Country: None (occurrence: None)
  Receive Date: 20110817
  Receipt Date: 20110117
  Transmission Date: 20111222
  Serious: Yes (Other)
  Sender: FDA-Public Use
  Company Number: 201110009

PATIENT
  Age: 47 Year
  Sex: Female

DRUGS (4)
  1. MORPHINE [Concomitant]
  2. CLONIDINE [Concomitant]
  3. BUPIVICAINE [Concomitant]
  4. LIORESAL [Suspect]
     Indication: MUSCLE SPASTICITY
     Dosage: DAILY, INTRATHECAL
     Route: 037

REACTIONS (1)
  - DRUG WITHDRAWAL SYNDROME [None]
